FAERS Safety Report 9149629 (Version 2)
Quarter: 2013Q2

REPORT INFORMATION
  Report Type: Spontaneous
  Country: TW (occurrence: TW)
  Receive Date: 20130308
  Receipt Date: 20130412
  Transmission Date: 20140414
  Serious: Yes (Hospitalization, Other)
  Sender: FDA-Public Use
  Company Number: PHHY2013TW020904

PATIENT
  Age: 84 Year
  Sex: Female
  Weight: 40 kg

DRUGS (1)
  1. ENOXAPARIN [Suspect]
     Dosage: 40 MG, UNK
     Route: 058

REACTIONS (9)
  - Abdominal mass [Recovered/Resolved]
  - Peritoneal haematoma [Recovered/Resolved]
  - Abdominal pain [Recovered/Resolved]
  - Abdominal distension [Recovered/Resolved]
  - Haemoglobin decreased [Recovered/Resolved]
  - Tachycardia [Recovered/Resolved]
  - Tachypnoea [Recovered/Resolved]
  - Hypotension [Recovered/Resolved]
  - Puncture site reaction [Recovered/Resolved]
